FAERS Safety Report 6917035-7 (Version None)
Quarter: 2010Q3

REPORT INFORMATION
  Report Type: 
  Country: None (occurrence: None)
  Receive Date: 20100810
  Receipt Date: 20100803
  Transmission Date: 20110219
  Serious: Yes (Hospitalization)
  Sender: FDA-Public Use
  Company Number: A0873760A

PATIENT
  Age: 77 Year
  Sex: Male

DRUGS (5)
  1. COREG [Suspect]
     Indication: PRODUCT USED FOR UNKNOWN INDICATION
     Route: 048
     Dates: start: 20100401
  2. COUMADIN [Concomitant]
  3. DIURETIC [Concomitant]
  4. HEART MEDICATION [Concomitant]
  5. DIURETIC [Concomitant]

REACTIONS (8)
  - AMMONIA INCREASED [None]
  - CARDIAC DISORDER [None]
  - CONFUSIONAL STATE [None]
  - DIZZINESS [None]
  - DYSPNOEA [None]
  - LIVER DISORDER [None]
  - MEMORY IMPAIRMENT [None]
  - RHINORRHOEA [None]
